FAERS Safety Report 10374251 (Version 3)
Quarter: 2014Q4

REPORT INFORMATION
  Report Type: Spontaneous
  Country: IT (occurrence: IT)
  Receive Date: 20140811
  Receipt Date: 20141107
  Transmission Date: 20150528
  Serious: Yes (Other)
  Sender: FDA-Public Use
  Company Number: IT-BIOGENIDEC-2014BI077854

PATIENT
  Age: 43 Year
  Sex: Male

DRUGS (2)
  1. GABAPENTIN. [Concomitant]
     Active Substance: GABAPENTIN
  2. AVONEX [Suspect]
     Active Substance: INTERFERON BETA-1A
     Indication: MULTIPLE SCLEROSIS
     Route: 030
     Dates: start: 20000101

REACTIONS (6)
  - Exophthalmos [Unknown]
  - Diarrhoea [Unknown]
  - Eye pain [Unknown]
  - Suicidal behaviour [Unknown]
  - Transaminases increased [Unknown]
  - Panic disorder [Unknown]

NARRATIVE: CASE EVENT DATE: 20130101
